FAERS Safety Report 20901966 (Version 1)
Quarter: 2022Q2

REPORT INFORMATION
  Report Type: Spontaneous
  Country: CA (occurrence: CA)
  Receive Date: 20220601
  Receipt Date: 20220601
  Transmission Date: 20220721
  Serious: Yes (Hospitalization, Disabling, Other)
  Sender: FDA-Public Use
  Company Number: CA-PFIZER INC-202200777018

PATIENT
  Sex: Female

DRUGS (1)
  1. EFFEXOR XR [Suspect]
     Active Substance: VENLAFAXINE HYDROCHLORIDE
     Indication: Depression
     Dosage: 250 MG, DAILY AT NOON TIME
     Route: 048

REACTIONS (7)
  - Paralysis [Recovered/Resolved]
  - Respiration abnormal [Recovered/Resolved]
  - Seizure [Recovered/Resolved]
  - Product dose omission in error [Recovered/Resolved]
  - Hyperventilation [Recovered/Resolved]
  - Withdrawal syndrome [Recovered/Resolved]
  - Inappropriate schedule of product administration [Unknown]

NARRATIVE: CASE EVENT DATE: 20220525
